FAERS Safety Report 7928041-8 (Version None)
Quarter: 2011Q4

REPORT INFORMATION
  Report Type: 
  Country: None (occurrence: None)
  Receive Date: 20111118
  Receipt Date: 20111109
  Transmission Date: 20120403
  Serious: Yes (Hospitalization)
  Sender: FDA-Public Use
  Company Number: US-BAYER-2011-043368

PATIENT
  Age: 49 Year
  Sex: Female
  Weight: 61 kg

DRUGS (20)
  1. AMLODIPINE [Concomitant]
     Dosage: UNK
     Route: 048
     Dates: start: 20000101
  2. ASPIRIN [Concomitant]
     Dosage: UNK
     Route: 048
     Dates: start: 20080101
  3. YASMIN [Suspect]
  4. HYDROCHLOROTHIAZID [Concomitant]
     Indication: HYPERTENSION
     Dosage: UNK
     Route: 048
     Dates: start: 20000101
  5. PRISTIQ [Concomitant]
     Indication: DEPRESSION
     Dosage: UNK
     Dates: start: 20080901, end: 20090901
  6. GUANTACINE [Concomitant]
     Indication: HYPERTENSION
     Dosage: UNK
     Route: 048
     Dates: start: 20080101, end: 20090101
  7. VITAMIN B COMPLEX CAP [Concomitant]
     Dosage: UNK
     Route: 048
  8. MULTI-VITAMINS [Concomitant]
     Dosage: UNK
  9. TOPAMAX [Concomitant]
     Indication: HEADACHE
     Dosage: UNK
     Route: 048
     Dates: start: 20000101
  10. TOPIRAMATE [Concomitant]
     Indication: HEADACHE
     Dosage: UNK
     Route: 048
     Dates: start: 20000101
  11. SINGULAIR [Concomitant]
     Indication: MULTIPLE ALLERGIES
     Dosage: UNK
     Route: 048
     Dates: start: 20080101
  12. CALCIUM [Concomitant]
     Dosage: UNK
     Route: 048
  13. YAZ [Suspect]
     Indication: CONTRACEPTION
     Dosage: UNK
     Dates: start: 20080201, end: 20090801
  14. YAZ [Suspect]
  15. YASMIN [Suspect]
     Indication: PREMENSTRUAL SYNDROME
  16. BENAZEPRIL HYDROCHLORIDE [Concomitant]
     Indication: HYPERTENSION
     Dosage: UNK
     Route: 048
     Dates: start: 20000101
  17. YASMIN [Suspect]
     Indication: CONTRACEPTION
     Dosage: UNK
     Dates: start: 20080501, end: 20080601
  18. YAZ [Suspect]
     Indication: PREMENSTRUAL SYNDROME
  19. NAPROXEN SODIUM W/PSEUDOEPHEDRINE HCL [Concomitant]
     Dosage: UNK
     Route: 048
     Dates: start: 20080101
  20. IBUPROFEN [Concomitant]
     Dosage: UNK
     Route: 048
     Dates: start: 20080101

REACTIONS (5)
  - DEEP VEIN THROMBOSIS [None]
  - ANXIETY [None]
  - ANHEDONIA [None]
  - EMOTIONAL DISTRESS [None]
  - PAIN [None]
